FAERS Safety Report 5255849-2 (Version None)
Quarter: 2007Q1

REPORT INFORMATION
  Report Type: 
  Country: None (occurrence: None)
  Receive Date: 20070301
  Receipt Date: 20061129
  Transmission Date: 20070707
  Serious: Yes (Other)
  Sender: FDA-Public Use
  Company Number: 2006S1000289

PATIENT
  Age: 60 Year
  Sex: Female
  Weight: 68.9921 kg

DRUGS (4)
  1. ACITRETIN [Suspect]
     Indication: PSORIASIS
     Dosage: 25 MG; QD; PO
     Route: 048
     Dates: start: 20020307, end: 20060328
  2. INSULIN [Concomitant]
  3. ATORVASTATIN CALCIUM [Concomitant]
  4. NIFEDIPINE [Concomitant]

REACTIONS (1)
  - AUTOIMMUNE HEPATITIS [None]
